APPROVED DRUG PRODUCT: VENLAFAXINE HYDROCHLORIDE
Active Ingredient: VENLAFAXINE HYDROCHLORIDE
Strength: EQ 225MG BASE
Dosage Form/Route: TABLET, EXTENDED RELEASE;ORAL
Application: A091272 | Product #004
Applicant: SUN PHARMACEUTICAL INDUSTRIES LTD
Approved: Jan 8, 2019 | RLD: No | RS: No | Type: DISCN